FAERS Safety Report 18611439 (Version 1)
Quarter: 2020Q4

REPORT INFORMATION
  Report Type: Spontaneous
  Country: GB (occurrence: GB)
  Receive Date: 20201214
  Receipt Date: 20201214
  Transmission Date: 20210114
  Serious: Yes (Other)
  Sender: FDA-Public Use
  Company Number: GB-MYLANLABS-2020M1100913

PATIENT
  Age: 35 Year
  Sex: Female
  Weight: 61.68 kg

DRUGS (2)
  1. DOXYCYCLINE. [Suspect]
     Active Substance: DOXYCYCLINE
     Indication: SINUSITIS
     Dosage: 100 MILLIGRAM
     Route: 048
     Dates: start: 20201013, end: 20201019
  2. MIRTAZAPINE. [Suspect]
     Active Substance: MIRTAZAPINE
     Indication: ANXIETY
     Dosage: 30 MILLIGRAM

REACTIONS (8)
  - Intrusive thoughts [Unknown]
  - Dizziness [Unknown]
  - Suicidal ideation [Unknown]
  - Panic attack [Unknown]
  - Drug interaction [Unknown]
  - Depression [Unknown]
  - Head discomfort [Unknown]
  - Anxiety [Unknown]

NARRATIVE: CASE EVENT DATE: 20201013
